FAERS Safety Report 23491851 (Version 1)
Quarter: 2024Q1

REPORT INFORMATION
  Report Type: Report from Study
  Country: US (occurrence: US)
  Receive Date: 20240207
  Receipt Date: 20240207
  Transmission Date: 20240410
  Serious: No
  Sender: FDA-Public Use
  Company Number: US-ORG100014127-2023001035

PATIENT
  Age: 58 Year
  Sex: Female

DRUGS (3)
  1. LYSODREN [Suspect]
     Active Substance: MITOTANE
     Indication: Adrenal gland cancer
     Dosage: TAKE 1 TABLET 2 TIMES A DAY
     Route: 048
     Dates: start: 20230722
  2. nivestym injection 480/0.8 [Concomitant]
     Indication: Product used for unknown indication
  3. ONDANSETRON Tablet 8MG [Concomitant]
     Indication: Product used for unknown indication

REACTIONS (2)
  - Feeling cold [Unknown]
  - Paraesthesia [Unknown]

NARRATIVE: CASE EVENT DATE: 20230901
